FAERS Safety Report 8487536-1 (Version None)
Quarter: 2012Q3

REPORT INFORMATION
  Report Type: 
  Country: None (occurrence: None)
  Receive Date: 20120705
  Receipt Date: 20120625
  Transmission Date: 20120928
  Serious: Yes (Other)
  Sender: FDA-Public Use
  Company Number: JP-ACCORD-013937

PATIENT
  Age: 24 Month
  Sex: Male
  Weight: 9 kg

DRUGS (2)
  1. METHOTREXATE [Concomitant]
     Indication: CORD BLOOD TRANSPLANT THERAPY
  2. TACROLIMUS [Suspect]
     Indication: CORD BLOOD TRANSPLANT THERAPY

REACTIONS (2)
  - OFF LABEL USE [None]
  - FOOD ALLERGY [None]
